FAERS Safety Report 4287171-5 (Version None)
Quarter: 2004Q1

REPORT INFORMATION
  Report Type: 
  Country: None (occurrence: None)
  Receive Date: 20040121
  Receipt Date: 20030825
  Transmission Date: 20041129
  Serious: Yes (Hospitalization)
  Sender: FDA-Public Use
  Company Number: 03P-163-0230895-00

PATIENT
  Age: 49 Year
  Sex: Female

DRUGS (3)
  1. RYTHMOL [Suspect]
  2. FUROSEMIDE [Suspect]
     Dates: end: 20030701
  3. CLOZAPINE [Concomitant]

REACTIONS (1)
  - HEART RATE DECREASED [None]
